FAERS Safety Report 5794435-2 (Version None)
Quarter: 2008Q2

REPORT INFORMATION
  Report Type: 
  Country: None (occurrence: None)
  Receive Date: 20080630
  Receipt Date: 20080625
  Transmission Date: 20081010
  Serious: Yes (Other)
  Sender: FDA-Public Use
  Company Number: US-RANBAXY-2008US-16091

PATIENT

DRUGS (3)
  1. CLARITHROMYCIN [Suspect]
     Indication: RESPIRATORY TRACT INFECTION
     Dosage: 250 MG/5ML, BID
     Route: 048
     Dates: start: 20080617, end: 20080620
  2. BETA-BLOCKERS [Concomitant]
     Indication: DRUG USE FOR UNKNOWN INDICATION
  3. ACID REFLUX MEDICATION [Concomitant]
     Indication: GASTROOESOPHAGEAL REFLUX DISEASE

REACTIONS (6)
  - ABDOMINAL DISCOMFORT [None]
  - BALANCE DISORDER [None]
  - DRY EYE [None]
  - EYE PAIN [None]
  - EYE SWELLING [None]
  - MUSCLE SPASMS [None]
